FAERS Safety Report 9816069 (Version 2)
Quarter: 2014Q1

REPORT INFORMATION
  Report Type: Spontaneous
  Country: US (occurrence: US)
  Receive Date: 20140114
  Receipt Date: 20140114
  Transmission Date: 20141002
  Serious: Yes (Hospitalization)
  Sender: FDA-Public Use
  Company Number: US-ABBVIE-13P-163-1137209-00

PATIENT
  Sex: Female
  Weight: 103.06 kg

DRUGS (3)
  1. DEPAKOTE [Suspect]
     Indication: BIPOLAR DISORDER
     Dates: start: 2000, end: 2002
  2. UNKNOWN ANXIETY MEDICATION [Concomitant]
     Indication: ANXIETY
  3. UNSPECIFIED INGREDIENT [Concomitant]
     Indication: DEPRESSION

REACTIONS (21)
  - Diverticulum [Not Recovered/Not Resolved]
  - Irritable bowel syndrome [Not Recovered/Not Resolved]
  - Large intestinal haemorrhage [Recovered/Resolved]
  - Vascular rupture [Recovered/Resolved]
  - Weight increased [Recovering/Resolving]
  - Hypertension [Recovered/Resolved]
  - Blood cholesterol increased [Not Recovered/Not Resolved]
  - Glucose tolerance impaired [Recovered/Resolved]
  - Oedema [Recovered/Resolved]
  - Insomnia [Recovering/Resolving]
  - Abnormal dreams [Recovering/Resolving]
  - Abnormal dreams [Recovering/Resolving]
  - Constipation [Recovered/Resolved]
  - Anxiety [Not Recovered/Not Resolved]
  - Headache [Recovered/Resolved]
  - Increased appetite [Recovered/Resolved]
  - Tremor [Recovered/Resolved]
  - Depression [Recovered/Resolved]
  - Somnolence [Recovered/Resolved]
  - Affective disorder [Recovered/Resolved]
  - Alopecia [Recovered/Resolved]
